FAERS Safety Report 6274767-4 (Version None)
Quarter: 2009Q3

REPORT INFORMATION
  Report Type: 
  Country: None (occurrence: None)
  Receive Date: 20090717
  Receipt Date: 20090707
  Transmission Date: 20100115
  Serious: Yes (Hospitalization, Other)
  Sender: FDA-Public Use
  Company Number: GXKR2009US07778

PATIENT
  Age: 17 Year
  Sex: Male

DRUGS (11)
  1. DIPHENHYDRAMINE HCL [Suspect]
     Indication: SLEEP DISORDER
     Dosage: PRN
  2. VENLAFAXINE HCL [Suspect]
     Indication: ANXIETY
     Dosage: 37.5 MG/DAY, 37.5 MG, BID, 37.5 MG IN THE MORNING, 1/2 37.5 MG-TABLET IN THE EVENING
  3. VENLAFAXINE HCL [Suspect]
     Indication: MIGRAINE
     Dosage: 37.5 MG/DAY, 37.5 MG, BID, 37.5 MG IN THE MORNING, 1/2 37.5 MG-TABLET IN THE EVENING
  4. VENLAFAXINE HCL [Suspect]
     Indication: ANXIETY
     Dosage: 37.5 MG/DAY, 37.5 MG, BID, 37.5 MG IN THE MORNING, 1/2 37.5 MG-TABLET IN THE EVENING
  5. VENLAFAXINE HCL [Suspect]
     Indication: MIGRAINE
     Dosage: 37.5 MG/DAY, 37.5 MG, BID, 37.5 MG IN THE MORNING, 1/2 37.5 MG-TABLET IN THE EVENING
  6. VENLAFAXINE HCL [Suspect]
     Indication: ANXIETY
     Dosage: 37.5 MG/DAY, 37.5 MG, BID, 37.5 MG IN THE MORNING, 1/2 37.5 MG-TABLET IN THE EVENING
  7. VENLAFAXINE HCL [Suspect]
     Indication: MIGRAINE
     Dosage: 37.5 MG/DAY, 37.5 MG, BID, 37.5 MG IN THE MORNING, 1/2 37.5 MG-TABLET IN THE EVENING
  8. ELETRIPTAN HYDROBROMIDE (ELETRIPTAN HYDROBROMIDE) [Suspect]
     Indication: MIGRAINE PROPHYLAXIS
     Dosage: QW (ON SUNDAY)
  9. LAMOTRIGINE [Concomitant]
  10. HYDROCODONE W/PARACETAMOL (HYDROCODONE, PARACETAMOL) [Concomitant]
  11. IBUPROFEN [Concomitant]

REACTIONS (5)
  - CONFUSIONAL STATE [None]
  - DISORIENTATION [None]
  - HALLUCINATION, TACTILE [None]
  - HALLUCINATION, VISUAL [None]
  - MENTAL STATUS CHANGES [None]
